FAERS Safety Report 7065299-4 (Version None)
Quarter: 2010Q4

REPORT INFORMATION
  Report Type: 
  Country: None (occurrence: None)
  Receive Date: 20101022
  Receipt Date: 20101022
  Transmission Date: 20110411
  Serious: Yes (Disabling)
  Sender: FDA-Public Use
  Company Number: None

PATIENT
  Age: 52 Year
  Sex: Female

DRUGS (13)
  1. VORICONAZOLE [Suspect]
     Dosage: 200 MG TWICE DAILY ORAL (047)
     Route: 048
     Dates: start: 20030301, end: 20070701
  2. TACROLIMUS [Concomitant]
  3. CARDIZEM [Concomitant]
  4. LABETALOL HCL [Concomitant]
  5. BACTRIM [Concomitant]
  6. PREDNISONE [Concomitant]
  7. CELLCEPT [Concomitant]
  8. LASIX [Concomitant]
  9. GABAPENTIN [Concomitant]
  10. AZITHROMYCIN [Concomitant]
  11. VALGANCICLOVIR HCL [Concomitant]
  12. CALCIUM [Concomitant]
  13. VORICONAZOLE [Concomitant]

REACTIONS (6)
  - FLUOROSIS [None]
  - HIGH TURNOVER OSTEOPATHY [None]
  - JOINT SWELLING [None]
  - PROGRESSIVE MULTIFOCAL LEUKOENCEPHALOPATHY [None]
  - RHONCHI [None]
  - SKIN NODULE [None]
